FAERS Safety Report 7923327 (Version 3)
Quarter: 2017Q2

REPORT INFORMATION
  Report Type: Spontaneous
  Country: US (occurrence: US)
  Receive Date: 20110429
  Receipt Date: 20170530
  Transmission Date: 20170830
  Serious: No
  Sender: FDA-Public Use
  Company Number: US-ASTRAZENECA-2010SE25215

PATIENT
  Age: 894 Month
  Sex: Female
  Weight: 72.6 kg

DRUGS (18)
  1. NEXIUM [Suspect]
     Active Substance: ESOMEPRAZOLE MAGNESIUM
     Indication: GASTROOESOPHAGEAL REFLUX DISEASE
     Route: 048
  2. MUCINEX [Concomitant]
     Active Substance: GUAIFENESIN
     Indication: CHEST DISCOMFORT
     Route: 048
  3. PROAIR HFA [Concomitant]
     Active Substance: ALBUTEROL SULFATE
     Indication: ASTHMA
     Dosage: 2 INHALATIONS AS NEEDED AS REQUIRED
     Route: 055
  4. LASIX [Concomitant]
     Active Substance: FUROSEMIDE
     Indication: FLUID RETENTION
     Dosage: AS REQUIRED
     Route: 048
  5. SYMBICORT [Suspect]
     Active Substance: BUDESONIDE\FORMOTEROL FUMARATE DIHYDRATE
     Indication: ASTHMA
     Dosage: 160/4.5 MCG TWO INHALATIONS TWICE A DAY
     Route: 055
  6. BENICAR [Concomitant]
     Active Substance: OLMESARTAN MEDOXOMIL
     Indication: BLOOD PRESSURE ABNORMAL
     Route: 048
     Dates: start: 2007
  7. SIMVASTATIN. [Concomitant]
     Active Substance: SIMVASTATIN
     Indication: BLOOD CHOLESTEROL ABNORMAL
     Route: 048
     Dates: start: 2015
  8. NORVASC [Concomitant]
     Active Substance: AMLODIPINE BESYLATE
     Indication: BLOOD PRESSURE ABNORMAL
     Route: 048
     Dates: start: 2007
  9. SPIRIVA [Concomitant]
     Active Substance: TIOTROPIUM BROMIDE MONOHYDRATE
     Indication: ASTHMA
     Dosage: 2 INHALATIONS ONCE A DAY
     Route: 055
     Dates: start: 201703
  10. MACROBID [Concomitant]
     Active Substance: NITROFURANTOIN\NITROFURANTOIN MONOHYDRATE
     Indication: URINARY TRACT DISORDER
     Route: 048
  11. ACETAMINOPHEN. [Concomitant]
     Active Substance: ACETAMINOPHEN
     Indication: PAIN
     Route: 048
  12. FLONASE [Concomitant]
     Active Substance: FLUTICASONE PROPIONATE
     Indication: ASTHMA
     Dosage: 2 SPRAYS PER NOSTRIL ONCE A DAY FOR AT LEAST 10 YEARS
     Route: 045
  13. FLONASE [Concomitant]
     Active Substance: FLUTICASONE PROPIONATE
     Indication: MULTIPLE ALLERGIES
     Dosage: 2 SPRAYS PER NOSTRIL ONCE A DAY FOR AT LEAST 10 YEARS
     Route: 045
  14. SPIRIVA [Concomitant]
     Active Substance: TIOTROPIUM BROMIDE MONOHYDRATE
     Indication: MULTIPLE ALLERGIES
     Dosage: 2 INHALATIONS ONCE A DAY
     Route: 055
     Dates: start: 201703
  15. PROAIR HFA [Concomitant]
     Active Substance: ALBUTEROL SULFATE
     Indication: MULTIPLE ALLERGIES
     Dosage: 2 INHALATIONS AS NEEDED AS REQUIRED
     Route: 055
  16. CYCLOBENZAPRINE. [Concomitant]
     Active Substance: CYCLOBENZAPRINE
     Indication: MUSCLE CONTRACTIONS INVOLUNTARY
     Route: 048
  17. SYNTHROID [Concomitant]
     Active Substance: LEVOTHYROXINE SODIUM
     Indication: THYROID DISORDER
     Route: 048
     Dates: start: 1997
  18. ALVESCO [Concomitant]
     Active Substance: CICLESONIDE
     Indication: ADJUVANT THERAPY
     Dosage: 2 INHALATIONS ONCE A DAY
     Route: 055
     Dates: start: 2014

REACTIONS (7)
  - Frustration tolerance decreased [Unknown]
  - Drug dose omission [Unknown]
  - Cough [Unknown]
  - Product use in unapproved indication [Unknown]
  - Memory impairment [Unknown]
  - Asthma [Unknown]
  - Laryngitis [Unknown]
